FAERS Safety Report 23569312 (Version 1)
Quarter: 2024Q1

REPORT INFORMATION
  Report Type: Report from Study
  Country: GB (occurrence: GB)
  Receive Date: 20240227
  Receipt Date: 20240227
  Transmission Date: 20240410
  Serious: Yes (Other)
  Sender: FDA-Public Use
  Company Number: GB-002147023-NVSC2022GB062397

PATIENT
  Sex: Female

DRUGS (2)
  1. COSENTYX [Suspect]
     Active Substance: SECUKINUMAB
     Indication: Ankylosing spondylitis
     Dosage: 150 MG, OTHER (INJECT 150MG (ONE PEN) SUBCUTANEOUSLY ON WEEKS 0, 1, 2, 3 AND 4 FOLLOWED BY ONCE MONT
     Route: 058
     Dates: start: 20211011
  2. COSENTYX [Suspect]
     Active Substance: SECUKINUMAB
     Dosage: 150 MG, QMO
     Route: 058

REACTIONS (4)
  - Lower respiratory tract infection [Unknown]
  - Oral discomfort [Unknown]
  - Candida infection [Unknown]
  - Rash [Unknown]
